FAERS Safety Report 26054114 (Version 1)
Quarter: 2025Q4

REPORT INFORMATION
  Report Type: Spontaneous
  Country: US (occurrence: None)
  Receive Date: 20251114
  Receipt Date: 20251114
  Transmission Date: 20260117
  Serious: Yes (Life-Threatening)
  Sender: FDA-CTU
  Company Number: None

PATIENT
  Age: 88 Year
  Sex: Female
  Weight: 57.61 kg

DRUGS (23)
  1. ROLL-ON PAIN [Suspect]
     Active Substance: LIDOCAINE HYDROCHLORIDE
     Indication: Myalgia
     Dates: end: 20250714
  2. TYLENOL [Concomitant]
     Active Substance: ACETAMINOPHEN
  3. Vitafusion [Concomitant]
  4. STOOL SOFTENER DOCUSATE SODIUM [Concomitant]
     Active Substance: DOCUSATE SODIUM
  5. TRUNATURE PROBIOTIC [Concomitant]
  6. Vitamin B12 1000 mcg [Concomitant]
  7. Vitamin D~ 50mg (2000 IU) [Concomitant]
  8. PAPAYA ENZVME WITH Chlorophyll to [Concomitant]
  9. SYNTHROID [Concomitant]
     Active Substance: LEVOTHYROXINE SODIUM
  10. Cymbalta 60 mg am [Concomitant]
  11. Cymbalta 20 mg pm [Concomitant]
  12. lrbesartan 300 mg pm [Concomitant]
  13. AMLODIPINE BESYLATE [Concomitant]
     Active Substance: AMLODIPINE BESYLATE
  14. Budesonide + Formoterol Fumarate Dihydrate [Concomitant]
  15. Albuterol Sulfate Inhalation Solution by Nebulizer [Concomitant]
  16. OBTASE DRY EYE INTENSE DROPS [Concomitant]
  17. Dye-Free Aspirin [Concomitant]
  18. FLUTICASONE PROPIONATE [Concomitant]
     Active Substance: FLUTICASONE PROPIONATE
  19. One A Day Women^s 6 [Concomitant]
  20. PreserVision ALREDS 2 Formula [Concomitant]
  21. TRUNATURE PROBIOTIC [Concomitant]
  22. STOOL SOFTENER  DOCUSATE SODIUIM [Concomitant]
  23. VITAFUSION FIBER WELL [Concomitant]

REACTIONS (3)
  - Muscle tightness [None]
  - Dyspnoea [None]
  - Therapeutic product effect incomplete [None]

NARRATIVE: CASE EVENT DATE: 20250714
